FAERS Safety Report 8258964-4 (Version None)
Quarter: 2012Q2

REPORT INFORMATION
  Report Type: 
  Country: None (occurrence: None)
  Receive Date: 20120404
  Receipt Date: 20120315
  Transmission Date: 20120825
  Serious: Yes (Other)
  Sender: FDA-Public Use
  Company Number: US-BAXTER-2012BH007474

PATIENT
  Sex: Male
  Weight: 174.09 kg

DRUGS (6)
  1. PREDNISONE TAB [Concomitant]
     Route: 048
  2. GAMMAGARD LIQUID [Suspect]
     Route: 042
     Dates: start: 20111101, end: 20111101
  3. TYLENOL [Concomitant]
     Indication: PREMEDICATION
     Route: 048
  4. GAMMAGARD LIQUID [Suspect]
     Indication: MYASTHENIA GRAVIS
     Route: 042
     Dates: start: 20111001, end: 20111101
  5. BENADRYL [Concomitant]
     Indication: PREMEDICATION
     Route: 048
  6. PREDNISONE TAB [Concomitant]
     Indication: MYASTHENIA GRAVIS
     Route: 048

REACTIONS (4)
  - GLYCOSYLATED HAEMOGLOBIN INCREASED [None]
  - CHILLS [None]
  - BACK PAIN [None]
  - MALAISE [None]
